FAERS Safety Report 9242932 (Version 1)
Quarter: 2013Q2

REPORT INFORMATION
  Report Type: Spontaneous
  Country: US (occurrence: US)
  Receive Date: 20130419
  Receipt Date: 20130419
  Transmission Date: 20140414
  Serious: No
  Sender: FDA-Public Use
  Company Number: US-009507513-1304USA008493

PATIENT
  Sex: Male

DRUGS (1)
  1. NASONEX [Suspect]
     Indication: ADENOIDITIS

REACTIONS (8)
  - Sleep terror [Unknown]
  - Fear of death [Unknown]
  - Paranoia [Unknown]
  - Molluscum contagiosum [Unknown]
  - Penis disorder [Unknown]
  - Genital disorder male [Unknown]
  - Body height below normal [Unknown]
  - Off label use [Unknown]
